FAERS Safety Report 8665534 (Version 2)
Quarter: 2013Q1

REPORT INFORMATION
  Report Type: Spontaneous
  Country: US (occurrence: None)
  Receive Date: 20120628
  Receipt Date: 20130327
  Transmission Date: 20140127
  Serious: Yes (Hospitalization, Other)
  Sender: FDA-Public Use
  Company Number: ADR-2012-01173

PATIENT
  Sex: Female

DRUGS (2)
  1. BACLOFEN INTRATHECAL [Suspect]
     Indication: MUSCLE SPASTICITY
  2. BACLOFEN INTRATHECAL [Suspect]
     Indication: MUSCLE SPASTICITY

REACTIONS (8)
  - Muscle spasms [None]
  - Muscle spasticity [None]
  - Incontinence [None]
  - Sensory loss [None]
  - Drug ineffective [None]
  - Hypotonia [None]
  - Immune system disorder [None]
  - Abdominal discomfort [None]
